FAERS Safety Report 9353126 (Version 1)
Quarter: 2013Q2

REPORT INFORMATION
  Report Type: Spontaneous
  Country: US (occurrence: None)
  Receive Date: 20130617
  Receipt Date: 20130617
  Transmission Date: 20140414
  Serious: Yes (Other)
  Sender: FDA-Public Use
  Company Number: None

PATIENT
  Sex: Female
  Weight: 123.83 kg

DRUGS (1)
  1. SYNTHROID ( GENERIC) [Suspect]
     Indication: HYPOTHYROIDISM
     Dosage: VARIED STRENGTH 1 DOSE PO QD
     Route: 048

REACTIONS (1)
  - Blood thyroid stimulating hormone abnormal [None]
